FAERS Safety Report 10413733 (Version 3)
Quarter: 2014Q3

REPORT INFORMATION
  Report Type: Spontaneous
  Country: PH (occurrence: PH)
  Receive Date: 20140827
  Receipt Date: 20140924
  Transmission Date: 20150326
  Serious: Yes (Life-Threatening, Hospitalization, Other)
  Sender: FDA-Public Use
  Company Number: PH-TAKEDA-2014JNJ005121

PATIENT

DRUGS (1)
  1. VELCADE [Suspect]
     Active Substance: BORTEZOMIB
     Indication: PLASMA CELL MYELOMA
     Route: 065

REACTIONS (6)
  - Carbon dioxide increased [Unknown]
  - Headache [Unknown]
  - Convulsion [Unknown]
  - Hyponatraemia [Unknown]
  - Asthenia [Unknown]
  - Paralysis [Unknown]
